FAERS Safety Report 9795549 (Version 1)
Quarter: 2014Q1

REPORT INFORMATION
  Report Type: Spontaneous
  Country: US (occurrence: US)
  Receive Date: 20140103
  Receipt Date: 20140103
  Transmission Date: 20141002
  Serious: Yes (Other)
  Sender: FDA-Public Use
  Company Number: US-BAYER-2014-000776

PATIENT
  Age: 34 Year
  Sex: Female
  Weight: 99 kg

DRUGS (7)
  1. YAZ [Suspect]
  2. IRON [Concomitant]
  3. CALCIUM [Concomitant]
  4. ZOLOFT [Concomitant]
     Dosage: 25 MG, UNK
  5. WELLBUTRIN XL [Concomitant]
     Dosage: 150 MG, UNK
  6. HYDROCHLOROTHIAZIDE [Concomitant]
     Dosage: 25 MG, UNK
  7. LEVOXYL [Concomitant]
     Dosage: 0.1 MG, UNK

REACTIONS (1)
  - Deep vein thrombosis [None]
